FAERS Safety Report 11694348 (Version 2)
Quarter: 2015Q4

REPORT INFORMATION
  Report Type: Spontaneous
  Country: BR (occurrence: BR)
  Receive Date: 20151103
  Receipt Date: 20151109
  Transmission Date: 20160304
  Serious: Yes (Life-Threatening, Hospitalization)
  Sender: FDA-Public Use
  Company Number: BR-JNJFOC-20151100216

PATIENT
  Age: 50 Year
  Sex: Female
  Weight: 90 kg

DRUGS (6)
  1. INVOKANA [Suspect]
     Active Substance: CANAGLIFLOZIN
     Indication: DIABETES MELLITUS
     Route: 048
     Dates: start: 20151014, end: 20151025
  2. INFRALAX [Suspect]
     Active Substance: ACETAMINOPHEN\CAFFEINE\CARISOPRODOL\DICLOFENAC SODIUM
     Indication: BACK PAIN
     Route: 065
     Dates: start: 20151027
  3. AMLODIPINE [Concomitant]
     Active Substance: AMLODIPINE BESYLATE
     Indication: HYPERTENSION
     Route: 048
  4. INSULIN [Concomitant]
     Active Substance: INSULIN NOS
     Indication: DIABETES MELLITUS
     Dosage: DOSE: 20/20/10 UI
     Route: 058
  5. VICTOZA [Concomitant]
     Active Substance: LIRAGLUTIDE
     Indication: DIABETES MELLITUS
     Dosage: DOSE: 1,2 MG/DIA
     Route: 058
  6. LOSARTAN. [Concomitant]
     Active Substance: LOSARTAN
     Indication: HYPERTENSION
     Route: 048

REACTIONS (5)
  - Pruritus [Unknown]
  - Headache [Unknown]
  - Spinal pain [Unknown]
  - Diabetic ketoacidosis [Recovered/Resolved]
  - Lip swelling [Unknown]

NARRATIVE: CASE EVENT DATE: 201510
